FAERS Safety Report 7055337-7 (Version None)
Quarter: 2010Q4

REPORT INFORMATION
  Report Type: 
  Country: None (occurrence: None)
  Receive Date: 20101019
  Receipt Date: 20101019
  Transmission Date: 20110411
  Serious: Yes (Hospitalization)
  Sender: FDA-Public Use
  Company Number: None

PATIENT
  Age: 86 Year
  Sex: Male
  Weight: 89.7 kg

DRUGS (2)
  1. TETRACYCLINE [Suspect]
     Indication: HELICOBACTER INFECTION
     Dosage: 500 MG QID PO
     Route: 048
     Dates: start: 20100803, end: 20100808
  2. BISMUTH SUBSALICYLATE [Suspect]
     Indication: HELICOBACTER INFECTION
     Dosage: 525 MG QID PO
     Route: 048
     Dates: start: 20100803, end: 20100808

REACTIONS (2)
  - RENAL FAILURE ACUTE [None]
  - TUBULOINTERSTITIAL NEPHRITIS [None]
